FAERS Safety Report 4447270-1 (Version None)
Quarter: 2004Q3

REPORT INFORMATION
  Report Type: 
  Country: None (occurrence: None)
  Receive Date: 20040813
  Receipt Date: 20040628
  Transmission Date: 20050211
  Serious: No
  Sender: FDA-Public Use
  Company Number: S04-USA-04060-02

PATIENT
  Sex: Female

DRUGS (7)
  1. NAMENDA [Suspect]
     Indication: DEMENTIA ALZHEIMER'S TYPE
     Dates: start: 20040401
  2. PREDNISONE [Concomitant]
  3. ZOLOFT [Concomitant]
  4. OMEPRAZOLE [Concomitant]
  5. THYROID TAB [Concomitant]
  6. ZYRTEC [Concomitant]
  7. FUROSEMIDE [Concomitant]

REACTIONS (2)
  - BELLIGERENCE [None]
  - HALLUCINATION [None]
